FAERS Safety Report 7876400 (Version 7)
Quarter: 2013Q1

REPORT INFORMATION
  Report Type: Report from Study
  Country: NL (occurrence: NL)
  Receive Date: 20110329
  Receipt Date: 20130117
  Transmission Date: 20140127
  Serious: Yes (Hospitalization)
  Sender: FDA-Public Use
  Company Number: PHHO2011NL04729

PATIENT
  Age: 23 Year
  Sex: Female
  Weight: 66 kg

DRUGS (1)
  1. FTY 720 [Suspect]
     Indication: MULTIPLE SCLEROSIS
     Dosage: 0.5 MG
     Route: 048
     Dates: start: 20101208, end: 20110314

REACTIONS (8)
  - Multiple sclerosis relapse [Recovered/Resolved with Sequelae]
  - Central nervous system lesion [Recovered/Resolved with Sequelae]
  - Hemiparesis [Recovered/Resolved with Sequelae]
  - Intracranial pressure increased [Recovered/Resolved with Sequelae]
  - Grand mal convulsion [Recovered/Resolved]
  - Headache [Recovered/Resolved with Sequelae]
  - Vomiting [Recovered/Resolved with Sequelae]
  - Nausea [Recovered/Resolved with Sequelae]
